FAERS Safety Report 8765615 (Version 4)
Quarter: 2012Q4

REPORT INFORMATION
  Report Type: 
  Country: DE (occurrence: DE)
  Receive Date: 20120903
  Receipt Date: 20121217
  Transmission Date: 20130627
  Serious: Yes (Hospitalization)
  Sender: FDA-Public Use
  Company Number: PHHY2012DE075613

PATIENT
  Age: 59 Year
  Sex: Female
  Weight: 82 kg

DRUGS (4)
  1. ZOMETA [Suspect]
     Indication: METASTASES TO BONE
     Dosage: 4 mg/5 ml, per month
     Route: 042
     Dates: start: 20100726, end: 201202
  2. ZOMETA [Suspect]
     Dosage: 4 mg/5 ml, per month
     Route: 042
     Dates: end: 201209
  3. ZOMETA [Suspect]
     Dosage: 4 mg/5 ml, per month
     Route: 042
  4. FASLODEX [Concomitant]
     Indication: BREAST CANCER METASTATIC
     Dosage: UNK UKN, UNK
     Route: 030
     Dates: start: 20120502

REACTIONS (8)
  - Osteonecrosis of jaw [Not Recovered/Not Resolved]
  - Osteomyelitis [Unknown]
  - Erythema [Unknown]
  - Swelling [Unknown]
  - Pain [Unknown]
  - Gingival infection [Unknown]
  - Aphagia [Unknown]
  - Exposed bone in jaw [Unknown]
